FAERS Safety Report 4585913-2 (Version None)
Quarter: 2005Q1

REPORT INFORMATION
  Report Type: 
  Country: None (occurrence: None)
  Receive Date: 20050214
  Receipt Date: 20050201
  Transmission Date: 20050727
  Serious: Yes (Hospitalization)
  Sender: FDA-Public Use
  Company Number: HK-2004-037027

PATIENT
  Age: 49 Year
  Sex: Female

DRUGS (2)
  1. ULTRAVIST 370 [Suspect]
     Indication: COMPUTERISED TOMOGRAM ABDOMEN
     Dosage: INTRAVENOUS
     Route: 042
     Dates: start: 20041130, end: 20041130
  2. ULTRAVIST 370 [Suspect]
     Indication: COMPUTERISED TOMOGRAM THORAX
     Dosage: INTRAVENOUS
     Route: 042
     Dates: start: 20041130, end: 20041130

REACTIONS (4)
  - GENERALISED OEDEMA [None]
  - NASAL CONGESTION [None]
  - SNEEZING [None]
  - TREMOR [None]
